FAERS Safety Report 9218587 (Version 1)
Quarter: 2013Q1

REPORT INFORMATION
  Report Type: Spontaneous
  Country: US (occurrence: None)
  Receive Date: 20120827
  Receipt Date: 20120827
  Transmission Date: 20140127
  Serious: Yes (Other)
  Sender: FDA-Public Use
  Company Number: 353034

PATIENT
  Age: 73 Year
  Sex: Female
  Weight: 80.9 kg

DRUGS (2)
  1. VICTOZA (LIRAGLUTIDE) SOLUTION FOR INJECTION 6MG/ML [Suspect]
     Indication: TYPE 2 DIABETES MELLITUS
     Route: 058
     Dates: start: 201111, end: 20120530
  2. METFORMIN (METFORMIN) [Concomitant]

REACTIONS (4)
  - Pancreatitis [None]
  - Periorbital oedema [None]
  - Oedema peripheral [None]
  - Nausea [None]
